FAERS Safety Report 7736320-2 (Version None)
Quarter: 2011Q3

REPORT INFORMATION
  Report Type: 
  Country: None (occurrence: None)
  Receive Date: 20110817
  Receipt Date: 20100927
  Transmission Date: 20111222
  Serious: Yes (Other)
  Sender: FDA-Public Use
  Company Number: 20108892

PATIENT
  Age: 18 Year
  Sex: Female

DRUGS (10)
  1. BOTOX [Concomitant]
  2. VIT D [Concomitant]
  3. SINGULAIR [Concomitant]
  4. BUDESONIDE NASAL INHALER [Concomitant]
  5. PAXIL [Concomitant]
  6. GANADEN [Concomitant]
  7. ZOFRAN [Concomitant]
  8. ORAL BACLOFEN [Concomitant]
  9. MIRALAX [Concomitant]
  10. LIORESAL [Suspect]
     Indication: MUSCLE SPASTICITY
     Dosage: MCG, DAILY, INTRATHECAL- SEE B5
     Route: 037

REACTIONS (3)
  - THERAPEUTIC RESPONSE DECREASED [None]
  - NAUSEA [None]
  - CONSTIPATION [None]
